FAERS Safety Report 10146005 (Version 2)
Quarter: 2015Q4

REPORT INFORMATION
  Report Type: Report from Study
  Country: BR (occurrence: BR)
  Receive Date: 20140501
  Receipt Date: 20151113
  Transmission Date: 20160304
  Serious: Yes (Other)
  Sender: FDA-Public Use
  Company Number: PHHY2014BR052618

PATIENT
  Age: 78 Year
  Sex: Female
  Weight: 76 kg

DRUGS (6)
  1. ZETIA [Concomitant]
     Active Substance: EZETIMIBE
     Indication: PROPHYLAXIS
     Dosage: 0.5 DF, QD
     Route: 048
  2. ATORVASTATIN [Concomitant]
     Active Substance: ATORVASTATIN
     Indication: PROPHYLAXIS
     Dosage: 0.5 DF, QD
     Route: 048
  3. FORASEQ [Suspect]
     Active Substance: BUDESONIDE\FORMOTEROL FUMARATE
     Indication: ASTHMA
     Dosage: 1 DF, BID (IN THE MORNING AND IN THE AFTERNOON)
     Route: 055
  4. SEEBRI BREEZHALER [Suspect]
     Active Substance: GLYCOPYRROLATE
     Indication: ASTHMA
     Dosage: 50 MG, UNK
     Route: 065
  5. FLUIMUCIL [Concomitant]
     Active Substance: ACETYLCYSTEINE
     Indication: PROPHYLAXIS
     Dosage: 1 DF, UNK
     Route: 048
  6. VITERGAN MASTER [Concomitant]
     Indication: VITAMIN SUPPLEMENTATION
     Dosage: 1 DF, QD
     Route: 048

REACTIONS (14)
  - Cerebral disorder [Unknown]
  - Drug ineffective [Unknown]
  - Nervousness [Recovered/Resolved]
  - Headache [Recovered/Resolved]
  - Dyspnoea [Recovered/Resolved]
  - Diabetes mellitus [Unknown]
  - Drug intolerance [Unknown]
  - Hypertension [Unknown]
  - Anxiety [Recovered/Resolved]
  - Drug administration error [Unknown]
  - Breast cancer [Recovered/Resolved]
  - Arrhythmia [Recovering/Resolving]
  - Asthma [Unknown]
  - Rhinitis [Recovered/Resolved]

NARRATIVE: CASE EVENT DATE: 2010
